FAERS Safety Report 9249884 (Version 1)
Quarter: 2013Q2

REPORT INFORMATION
  Report Type: Spontaneous
  Country: US (occurrence: US)
  Receive Date: 20130423
  Receipt Date: 20130423
  Transmission Date: 20140414
  Serious: Yes (Hospitalization)
  Sender: FDA-Public Use
  Company Number: US-MYLANLABS-2013S1008035

PATIENT
  Age: 35 Year
  Sex: Female

DRUGS (7)
  1. PHENYLEPHRINE [Concomitant]
     Dosage: 20-40 MICROG/MIN
     Route: 050
  2. SUFENTANIL [Concomitant]
     Dosage: 0.01 MICROG/KG/MIN
     Route: 050
  3. HYDROMORPHONE [Suspect]
     Indication: POSTOPERATIVE ANALGESIA
     Dosage: PCA STARTED ON THE FIRST POSTOPERATIVE DAY; RECEIVED 33MG IN THE 24 HOURS PRECEDING INTUBATION
     Route: 065
  4. KETOROLAC [Suspect]
     Indication: POSTOPERATIVE ANALGESIA
     Route: 065
  5. DIPHENHYDRAMINE [Suspect]
     Indication: DRUG HYPERSENSITIVITY
     Dosage: SEVERAL DOSES
     Route: 065
  6. DEXMEDETOMIDINE [Concomitant]
     Indication: POSTOPERATIVE ANALGESIA
     Route: 050
  7. SEVOFLURANE [Concomitant]
     Indication: GENERAL ANAESTHESIA
     Route: 065

REACTIONS (3)
  - Abdominal compartment syndrome [Recovered/Resolved]
  - Postoperative ileus [Recovering/Resolving]
  - Drug hypersensitivity [Recovered/Resolved]
